FAERS Safety Report 11665695 (Version 1)
Quarter: 2015Q4

REPORT INFORMATION
  Report Type: Spontaneous
  Country: CH (occurrence: CH)
  Receive Date: 20151027
  Receipt Date: 20151027
  Transmission Date: 20160304
  Serious: Yes (Life-Threatening)
  Sender: FDA-Public Use
  Company Number: CH-009507513-1510CHE010375

PATIENT
  Age: 40 Year
  Sex: Male

DRUGS (3)
  1. EUTHYROX [Concomitant]
     Active Substance: LEVOTHYROXINE SODIUM
     Dosage: 0.1 MG, ONCE PER DAY
     Route: 048
     Dates: start: 20150606
  2. CYLATRON [Suspect]
     Active Substance: PEGINTERFERON ALFA-2B
     Indication: MALIGNANT MELANOMA
     Dosage: 200 MICROGRAM, 1 PER MONTH
     Route: 040
     Dates: start: 20150605, end: 20150704
  3. VITAMIN D [Concomitant]
     Active Substance: CHOLECALCIFEROL
     Dosage: 10 GTT, ONCE PER DAY
     Route: 048

REACTIONS (8)
  - Confusional state [Recovered/Resolved]
  - Headache [Recovered/Resolved]
  - Aphasia [Recovered/Resolved]
  - Lymphopenia [None]
  - Pyrexia [Recovered/Resolved]
  - Infection [None]
  - Leukocytosis [None]
  - Fatigue [Recovered/Resolved]

NARRATIVE: CASE EVENT DATE: 20150704
